FAERS Safety Report 6900131-8 (Version None)
Quarter: 2010Q3

REPORT INFORMATION
  Report Type: 
  Country: None (occurrence: None)
  Receive Date: 20100803
  Receipt Date: 20100720
  Transmission Date: 20110219
  Serious: Yes (Death, Hospitalization, Other)
  Sender: FDA-Public Use
  Company Number: AU-ELI_LILLY_AND_COMPANY-AU201007000340

PATIENT
  Sex: Male
  Weight: 56 kg

DRUGS (12)
  1. CYMBALTA [Suspect]
     Indication: DEPRESSION
     Dosage: 60 MG, DAILY (1/D)
     Route: 065
     Dates: start: 20090703
  2. FOSAMAX [Concomitant]
     Dosage: 70 MG, WEEKLY (1/W)
  3. PANAMAX [Concomitant]
     Dosage: 4000 MG, (A DAY, TAKE WHEN NECESSARY)
  4. PANAMAX [Concomitant]
     Dosage: UNK, AS NEEDED
  5. SOMAC [Concomitant]
     Dosage: 40 MG, DAILY (1/D)
  6. RAMIPRIL [Concomitant]
     Dosage: 5 MG, DAILY (1/D)
  7. LASIX [Concomitant]
     Dosage: 40 MG, DAILY (1/D)
  8. XALATAN [Concomitant]
     Dosage: UNK, 2/D (50 UG/1ML 2.5ML - 1 DROP BOTH EYES)
  9. DUCENE [Concomitant]
     Dosage: 2 MG, 2/D
  10. COUMADIN [Concomitant]
     Indication: ATRIAL FIBRILLATION
     Dosage: 5 MG, DAILY (1/D)
  11. COUMADIN [Concomitant]
     Dosage: 4 MG, DAILY (1/D)
  12. TEMAZE [Concomitant]
     Dosage: 10 MG, DAILY (1/D) AT NIGHT

REACTIONS (8)
  - ANEURYSM RUPTURED [None]
  - FALL [None]
  - PELVIC MASS [None]
  - PERIPHERAL ARTERY ANEURYSM [None]
  - PLEURAL EFFUSION [None]
  - SKULL FRACTURE [None]
  - SPINAL FRACTURE [None]
  - SYNCOPE [None]
